FAERS Safety Report 4925870-X (Version None)
Quarter: 2006Q1

REPORT INFORMATION
  Report Type: 
  Country: None (occurrence: None)
  Receive Date: 20060228
  Receipt Date: 20050406
  Transmission Date: 20060701
  Serious: No
  Sender: FDA-Public Use
  Company Number: US-GLAXOSMITHKLINE-A0552992A

PATIENT
  Age: 57 Year
  Sex: Male

DRUGS (2)
  1. LAMICTAL [Suspect]
     Indication: EPILEPSY
     Dosage: 300MG PER DAY
     Route: 048
  2. BLOOD PRESSURE MEDICATION [Concomitant]
     Route: 065

REACTIONS (2)
  - COGNITIVE DISORDER [None]
  - COORDINATION ABNORMAL [None]
